FAERS Safety Report 6602014-X (Version None)
Quarter: 2010Q1

REPORT INFORMATION
  Report Type: 
  Country: None (occurrence: None)
  Receive Date: 20100218
  Receipt Date: 20100208
  Transmission Date: 20100710
  Serious: No
  Sender: FDA-Public Use
  Company Number: 95109

PATIENT
  Sex: Male

DRUGS (1)
  1. ACETYLCYSTEINE [Suspect]
     Indication: ANGIOPLASTY
     Dosage: 7ML (1400MG) ORAL
     Route: 048
     Dates: start: 20100208

REACTIONS (1)
  - INCORRECT DOSE ADMINISTERED [None]
